FAERS Safety Report 5055478-X (Version None)
Quarter: 2006Q3

REPORT INFORMATION
  Report Type: 
  Country: None (occurrence: None)
  Receive Date: 20060717
  Receipt Date: 20060717
  Transmission Date: 20061208
  Serious: Yes (Hospitalization)
  Sender: FDA-Public Use
  Company Number: None

PATIENT
  Age: 85 Year
  Sex: Female
  Weight: 91 kg

DRUGS (12)
  1. WARFARIN SODIUM [Suspect]
     Indication: ANTICOAGULANT THERAPY
     Dosage: 8 MG PO DAILY -[CHRONIC]
     Route: 048
  2. WARFARIN SODIUM [Suspect]
     Indication: CEREBROVASCULAR ACCIDENT
     Dosage: 8 MG PO DAILY -[CHRONIC]
     Route: 048
  3. LEXAPRO [Concomitant]
  4. CAPTOPRIL [Concomitant]
  5. BUMEX [Concomitant]
  6. CALAN [Concomitant]
  7. VIT C [Concomitant]
  8. POTASSIUM CHLORIDE [Concomitant]
  9. FESO4 [Concomitant]
  10. COLACE [Concomitant]
  11. MOM [Concomitant]
  12. SENOKOT [Concomitant]

REACTIONS (5)
  - ARTERIOVENOUS MALFORMATION [None]
  - DRUG LEVEL ABOVE THERAPEUTIC [None]
  - INTERNATIONAL NORMALISED RATIO INCREASED [None]
  - LOBAR PNEUMONIA [None]
  - LOWER GASTROINTESTINAL HAEMORRHAGE [None]
